FAERS Safety Report 16770871 (Version 1)
Quarter: 2019Q3

REPORT INFORMATION
  Report Type: Spontaneous
  Country: US (occurrence: US)
  Receive Date: 20190904
  Receipt Date: 20190904
  Transmission Date: 20191005
  Serious: No
  Sender: FDA-Public Use
  Company Number: US-MYLANLABS-2019M1074022

PATIENT
  Sex: Female

DRUGS (3)
  1. LIDOCAINE PATCH [Suspect]
     Active Substance: LIDOCAINE
     Indication: INTERVERTEBRAL DISC DEGENERATION
  2. LIDOCAINE PATCH [Suspect]
     Active Substance: LIDOCAINE
     Indication: FIBROMYALGIA
  3. LIDOCAINE PATCH [Suspect]
     Active Substance: LIDOCAINE
     Indication: OSTEOARTHRITIS
     Dosage: UNK
     Route: 003
     Dates: start: 2019

REACTIONS (3)
  - Product adhesion issue [Unknown]
  - Off label use [Unknown]
  - Product quality issue [Unknown]

NARRATIVE: CASE EVENT DATE: 2019
